FAERS Safety Report 5154130-X (Version None)
Quarter: 2006Q4

REPORT INFORMATION
  Report Type: 
  Country: None (occurrence: None)
  Receive Date: 20061120
  Receipt Date: 20061114
  Transmission Date: 20070319
  Serious: Yes (Other)
  Sender: FDA-Public Use
  Company Number: US-PURDUE-USA_2006_0025716

PATIENT
  Sex: Male

DRUGS (4)
  1. OXYCONTIN [Suspect]
     Indication: BACK PAIN
     Dosage: 60 MG, QID
     Dates: start: 20030513, end: 20060731
  2. DURAGESIC-100 [Concomitant]
     Indication: BACK PAIN
     Dosage: 100 MCG/HR, UNK
     Route: 062
  3. XANAX [Concomitant]
  4. VALIUM [Concomitant]

REACTIONS (4)
  - CEREBROVASCULAR ACCIDENT [None]
  - DRUG WITHDRAWAL SYNDROME [None]
  - HYPOAESTHESIA [None]
  - PARAESTHESIA [None]
